FAERS Safety Report 17201867 (Version 6)
Quarter: 2022Q2

REPORT INFORMATION
  Report Type: Spontaneous
  Country: US (occurrence: US)
  Receive Date: 20191226
  Receipt Date: 20220504
  Transmission Date: 20220721
  Serious: No
  Sender: FDA-Public Use
  Company Number: US-PFIZER INC-2019552788

PATIENT
  Age: 52 Year
  Sex: Male

DRUGS (2)
  1. LYRICA [Suspect]
     Active Substance: PREGABALIN
     Indication: Neuralgia
     Dosage: UNK (BEEN TAKING 900 MG FOR YEARS NOW)
  2. LYRICA [Suspect]
     Active Substance: PREGABALIN
     Dosage: UNK (BEEN TAKING 3 TABLETS INSTEAD OF 2 TABLETS )

REACTIONS (4)
  - Drug ineffective [Unknown]
  - Intentional product use issue [Unknown]
  - Overdose [Unknown]
  - Road traffic accident [Unknown]
